FAERS Safety Report 21935329 (Version 6)
Quarter: 2023Q2

REPORT INFORMATION
  Report Type: Spontaneous
  Country: US (occurrence: US)
  Receive Date: 20230201
  Receipt Date: 20230425
  Transmission Date: 20230722
  Serious: No
  Sender: FDA-Public Use
  Company Number: US-PFIZER INC-PV202200036710

PATIENT
  Age: 15 Year
  Sex: Male
  Weight: 47.619 kg

DRUGS (3)
  1. GENOTROPIN [Suspect]
     Active Substance: SOMATROPIN
     Indication: Growth hormone deficiency
     Dosage: 1.8 ML, 1X/DAY
     Dates: start: 202205
  2. GENOTROPIN [Suspect]
     Active Substance: SOMATROPIN
     Dosage: UNK
  3. GENOTROPIN [Suspect]
     Active Substance: SOMATROPIN
     Dosage: UNK

REACTIONS (5)
  - Incorrect dose administered by device [Unknown]
  - Liquid product physical issue [Unknown]
  - Device leakage [Unknown]
  - Device malfunction [Unknown]
  - Product dose omission issue [Unknown]
